FAERS Safety Report 8793495 (Version 1)
Quarter: 2012Q4

REPORT INFORMATION
  Report Type: 
  Country: US (occurrence: US)
  Receive Date: 20120918
  Receipt Date: 20120918
  Transmission Date: 20130627
  Serious: Yes (Other)
  Sender: FDA-Public Use
  Company Number: US-BAYER-2012-095174

PATIENT
  Age: 81 Year
  Sex: Female
  Weight: 67 kg

DRUGS (8)
  1. BAYER ASPIRIN REGIMEN ADULT LOW STRENGTH [Suspect]
  2. PLAVIX [Suspect]
     Indication: ANTICOAGULANT THERAPY
     Dosage: 75 mg, QD
     Route: 048
     Dates: start: 20120808
  3. PLAVIX [Suspect]
     Indication: ANTICOAGULANT THERAPY
     Dosage: 75 mg, QD
     Route: 048
     Dates: start: 2009, end: 2012
  4. LIPITOR [Suspect]
     Route: 048
  5. ZOCOR [Suspect]
     Indication: CARDIAC DISORDER
     Dosage: UNK
     Dates: end: 2012
  6. HYDROCHLOROTHIAZIDE [Concomitant]
  7. METOPROLOL [Concomitant]
  8. TRIAZOLAM [Concomitant]

REACTIONS (9)
  - Pain in extremity [None]
  - Muscle spasms [None]
  - Gait disturbance [None]
  - Loss of control of legs [None]
  - Muscle spasms [None]
  - Pharyngeal haemorrhage [None]
  - Haemoptysis [None]
  - Retching [None]
  - Spondylitis [None]
